FAERS Safety Report 8399343 (Version 5)
Quarter: 2013Q2

REPORT INFORMATION
  Report Type: Spontaneous
  Country: JP (occurrence: JP)
  Receive Date: 20120210
  Receipt Date: 20130610
  Transmission Date: 20140414
  Serious: Yes (Death, Hospitalization, Other)
  Sender: FDA-Public Use
  Company Number: JP-ABBOTT-12P-087-0892299-00

PATIENT
  Age: 76 Year
  Sex: Female
  Weight: 45 kg

DRUGS (5)
  1. HUMIRA 40 MG/ 0.8 ML PRE-FILLED SYRINGE [Suspect]
     Indication: RHEUMATOID ARTHRITIS
     Route: 058
     Dates: start: 20110719, end: 20111227
  2. METHOTREXATE [Suspect]
     Indication: RHEUMATOID ARTHRITIS
     Route: 048
     Dates: end: 20111227
  3. PREDNISOLONE [Concomitant]
     Indication: RHEUMATOID ARTHRITIS
     Route: 048
  4. FOLIC ACID [Concomitant]
     Indication: RHEUMATOID ARTHRITIS
     Dosage: 5 MG/WEEK
     Route: 048
     Dates: end: 20111227
  5. TERIPARATIDE [Concomitant]
     Indication: OSTEOPOROSIS
     Route: 058
     Dates: start: 20101228

REACTIONS (14)
  - Interstitial lung disease [Fatal]
  - Respiratory failure [Fatal]
  - Pneumocystis jirovecii pneumonia [Fatal]
  - Respiratory disorder [Unknown]
  - Shock [Unknown]
  - Lung infiltration [Not Recovered/Not Resolved]
  - Malaise [Unknown]
  - Pleurisy [Unknown]
  - Emphysema [Unknown]
  - Rheumatoid lung [Unknown]
  - Asthenia [Unknown]
  - Nasopharyngitis [Unknown]
  - Immunosuppression [Unknown]
  - Interstitial lung disease [Unknown]
